FAERS Safety Report 10418653 (Version 1)
Quarter: 2014Q3

REPORT INFORMATION
  Report Type: Spontaneous
  Country: DK (occurrence: DK)
  Receive Date: 20140829
  Receipt Date: 20140829
  Transmission Date: 20150326
  Serious: Yes (Life-Threatening, Hospitalization)
  Sender: FDA-Public Use
  Company Number: DK-JNJFOC-20140816193

PATIENT
  Age: 19 Year
  Sex: Female

DRUGS (2)
  1. TRUXAL [Concomitant]
     Active Substance: CHLORPROTHIXENE
     Indication: PSYCHOTIC DISORDER
     Dates: start: 200504
  2. RISPERDAL [Suspect]
     Active Substance: RISPERIDONE
     Indication: SCHIZOPHRENIA
     Route: 048
     Dates: start: 20050127, end: 20060629

REACTIONS (21)
  - Memory impairment [Recovered/Resolved]
  - Tremor [Recovered/Resolved]
  - Slow speech [Recovered/Resolved]
  - Suicidal ideation [Recovered/Resolved]
  - Psychiatric symptom [Recovered/Resolved]
  - Agitation [Recovered/Resolved]
  - Emotional poverty [Recovered/Resolved]
  - Fatigue [Recovered/Resolved]
  - Asthenia [Recovered/Resolved]
  - Anxiety [Recovered/Resolved]
  - Depression [Recovered/Resolved]
  - Depersonalisation [Recovered/Resolved]
  - Muscle rigidity [Recovered/Resolved]
  - Self esteem decreased [Recovered/Resolved]
  - Autophobia [Recovered/Resolved]
  - Learning disability [Recovered/Resolved]
  - Dyspnoea [Recovered/Resolved]
  - Disturbance in attention [Recovered/Resolved]
  - Suicide attempt [Recovered/Resolved]
  - Paranoia [Recovered/Resolved]
  - Somnolence [Recovered/Resolved]

NARRATIVE: CASE EVENT DATE: 200502
